FAERS Safety Report 14625682 (Version 2)
Quarter: 2018Q1

REPORT INFORMATION
  Report Type: Spontaneous
  Country: US (occurrence: US)
  Receive Date: 20180312
  Receipt Date: 20180328
  Transmission Date: 20180509
  Serious: No
  Sender: FDA-Public Use
  Company Number: US-GLAXOSMITHKLINE-US2018037926

PATIENT
  Age: 68 Year
  Sex: Female

DRUGS (2)
  1. NICODERM CQ [Suspect]
     Active Substance: NICOTINE
     Indication: SMOKING CESSATION THERAPY
     Dosage: 21 MG, UNK
     Route: 062
     Dates: start: 20180201, end: 20180302
  2. NICODERM CQ [Suspect]
     Active Substance: NICOTINE
     Dosage: 21 MG, UNK

REACTIONS (6)
  - Nausea [Recovering/Resolving]
  - Malaise [Recovering/Resolving]
  - Abdominal pain upper [Recovering/Resolving]
  - Application site erythema [Recovering/Resolving]
  - Headache [Recovering/Resolving]
  - Oropharyngeal pain [Recovering/Resolving]

NARRATIVE: CASE EVENT DATE: 20180302
